FAERS Safety Report 8430772-0 (Version None)
Quarter: 2012Q2

REPORT INFORMATION
  Report Type: 
  Country: None (occurrence: None)
  Receive Date: 20120612
  Receipt Date: 20120604
  Transmission Date: 20120825
  Serious: Yes (Death)
  Sender: FDA-Public Use
  Company Number: US-RB-038298-12

PATIENT
  Age: 29 Year
  Sex: Female

DRUGS (2)
  1. SUBOXONE [Suspect]
     Indication: DRUG DEPENDENCE
     Dosage: DOSING DETAILS UNKNOWN
     Route: 065
  2. OXYCONTIN [Suspect]
     Indication: PRODUCT USED FOR UNKNOWN INDICATION
     Dosage: 120 TABLETS
     Route: 065
     Dates: start: 20110608, end: 20110608

REACTIONS (5)
  - DRUG DEPENDENCE [None]
  - OVERDOSE [None]
  - DYSPNOEA [None]
  - GUN SHOT WOUND [None]
  - LOCAL SWELLING [None]
